FAERS Safety Report 6167274-0 (Version None)
Quarter: 2009Q2

REPORT INFORMATION
  Report Type: 
  Country: None (occurrence: None)
  Receive Date: 20090424
  Receipt Date: 20090420
  Transmission Date: 20091009
  Serious: Yes (Death, Hospitalization)
  Sender: FDA-Public Use
  Company Number: JP-TEVA-192225ISR

PATIENT
  Sex: Male
  Weight: 49.8 kg

DRUGS (9)
  1. FLUOROURACIL [Suspect]
     Indication: RECTAL CANCER
     Route: 040
     Dates: start: 20081202, end: 20090202
  2. FLUOROURACIL [Suspect]
     Route: 041
     Dates: start: 20081202, end: 20090203
  3. FLUOROURACIL [Concomitant]
  4. CETUXIMAB [Suspect]
     Indication: RECTAL CANCER
     Route: 042
     Dates: start: 20081202, end: 20081202
  5. IRINOTECAN HCL [Concomitant]
     Indication: RECTAL CANCER
     Route: 041
  6. DEXCHLORPHENIRAMINE MALEATE [Concomitant]
     Indication: PREMEDICATION
     Dosage: 1 DOSAGE FORM
     Route: 042
  7. DEXAMETHASONE [Concomitant]
     Indication: PREMEDICATION
     Route: 042
     Dates: start: 20081202, end: 20090216
  8. AZASETRON HYDROCHLORIDE [Concomitant]
     Indication: ANTIEMETIC SUPPORTIVE CARE
     Dosage: 1 DOSAGE FORM
     Dates: start: 20081202, end: 20090216
  9. FOLINIC ACID [Concomitant]
     Indication: RECTAL CANCER
     Route: 042
     Dates: start: 20081202, end: 20090202

REACTIONS (2)
  - PLEURAL EFFUSION [None]
  - RIGHT VENTRICULAR FAILURE [None]
